FAERS Safety Report 7199277-1 (Version None)
Quarter: 2010Q4

REPORT INFORMATION
  Report Type: 
  Country: None (occurrence: None)
  Receive Date: 20101223
  Receipt Date: 20101223
  Transmission Date: 20110411
  Serious: Yes (Other)
  Sender: FDA-Public Use
  Company Number: None

PATIENT
  Sex: Male
  Weight: 81.6475 kg

DRUGS (4)
  1. ZOCOR [Suspect]
     Indication: BLOOD CHOLESTEROL
     Dosage: 80 MG 1 EA DAY ORAL
     Route: 048
     Dates: start: 20070101, end: 20100101
  2. ZETIA [Suspect]
     Indication: BLOOD CHOLESTEROL
     Dosage: 10 MG 1 EA DAY ORAL
     Route: 048
     Dates: start: 20090101, end: 20100101
  3. NEURONTIN [Suspect]
     Indication: BLOOD CHOLESTEROL
     Dosage: 300 MG 1 EA DAY ORAL
     Route: 048
     Dates: start: 20090101, end: 20100101
  4. HYDROCHLOROTHIAZIDE [Suspect]
     Indication: HYPERTENSION
     Dosage: ONE TABLET DAILY

REACTIONS (2)
  - HYPOAESTHESIA [None]
  - PARAESTHESIA [None]
